FAERS Safety Report 17464924 (Version 1)
Quarter: 2020Q1

REPORT INFORMATION
  Report Type: Spontaneous
  Country: GB (occurrence: GB)
  Receive Date: 20200226
  Receipt Date: 20200226
  Transmission Date: 20200409
  Serious: Yes (Other)
  Sender: FDA-Public Use
  Company Number: GB-TERSERA THERAPEUTICS LLC-2020TRS000470

PATIENT

DRUGS (1)
  1. ZOLADEX [Suspect]
     Active Substance: GOSERELIN ACETATE
     Indication: PRODUCT USED FOR UNKNOWN INDICATION
     Dosage: 3.6MG UNKNOWN
     Route: 058
     Dates: start: 20200210

REACTIONS (4)
  - Head discomfort [Unknown]
  - Burning sensation [Unknown]
  - Product prescribing error [Unknown]
  - Feeling abnormal [Unknown]
